FAERS Safety Report 9472097 (Version 2)
Quarter: 2013Q3

REPORT INFORMATION
  Report Type: Report from Study
  Country: DE (occurrence: DE)
  Receive Date: 20130823
  Receipt Date: 20130823
  Transmission Date: 20140515
  Serious: Yes (Hospitalization)
  Sender: FDA-Public Use
  Company Number: DE-ROCHE-1248947

PATIENT
  Age: 56 Year
  Sex: Male
  Weight: 72 kg

DRUGS (1)
  1. TOCILIZUMAB [Suspect]
     Indication: RHEUMATOID ARTHRITIS
     Dosage: (LAST TOCILIZUMAB INFUSIONS (600MG) PRIOR THE EVENT OF PNEUMONIA: ON 29/FEB/2013, 27/MAR/2013, 25/AP
     Route: 042
     Dates: start: 20121129

REACTIONS (2)
  - Pneumonia [Recovering/Resolving]
  - Pleural effusion [Recovering/Resolving]
